FAERS Safety Report 15378982 (Version 2)
Quarter: 2018Q4

REPORT INFORMATION
  Report Type: Spontaneous
  Country: FR (occurrence: FR)
  Receive Date: 20180913
  Receipt Date: 20181001
  Transmission Date: 20190204
  Serious: Yes (Hospitalization, Other)
  Sender: FDA-Public Use
  Company Number: FR-SA-2018SA250681

PATIENT
  Age: 23 Year
  Sex: Male
  Weight: 49 kg

DRUGS (15)
  1. METHYLPREDNISOLONE SODIUM SUCCINATE. [Suspect]
     Active Substance: METHYLPREDNISOLONE SODIUM SUCCINATE
     Indication: CROHN^S DISEASE
     Dosage: 60 MG
     Route: 048
     Dates: start: 20080811
  2. LOVENOX [Suspect]
     Active Substance: ENOXAPARIN SODIUM
     Indication: PRODUCT USED FOR UNKNOWN INDICATION
     Dosage: UNK
     Route: 058
     Dates: start: 20081224
  3. CALCIUM CARBONATE. [Suspect]
     Active Substance: CALCIUM CARBONATE
     Indication: PRODUCT USED FOR UNKNOWN INDICATION
     Dosage: 1 DF, QD
     Route: 048
     Dates: start: 20081227
  4. STRUCTOKABIVEN [Suspect]
     Active Substance: AMINO ACIDS\DEXTROSE\ELECTROLYTES NOS
     Indication: MALNUTRITION
     Route: 041
     Dates: start: 20081228, end: 20090207
  5. DESLORATADINE. [Suspect]
     Active Substance: DESLORATADINE
     Dosage: UNK
  6. REMICADE [Suspect]
     Active Substance: INFLIXIMAB
     Indication: CROHN^S DISEASE
     Dosage: 100 MG
     Route: 042
     Dates: start: 20090120
  7. DESLORATADINE. [Suspect]
     Active Substance: DESLORATADINE
     Indication: RASH
     Dosage: 1 DF, QD
     Route: 048
     Dates: start: 20090107
  8. FLUCONAZOLE. [Suspect]
     Active Substance: FLUCONAZOLE
     Dosage: 200 MG, QD
     Route: 048
     Dates: start: 20090119, end: 20090130
  9. TRANXENE [Suspect]
     Active Substance: CLORAZEPATE DIPOTASSIUM
     Indication: ANXIETY
     Dosage: 1 DF, QD
     Route: 042
     Dates: start: 20081222, end: 20090123
  10. CILASTATIN SODIUM/IMIPENEM [Suspect]
     Active Substance: CILASTATIN SODIUM\IMIPENEM
     Indication: ABSCESS
     Route: 042
     Dates: start: 20081222, end: 20090112
  11. SPECIAFOLDINE [Suspect]
     Active Substance: FOLIC ACID
     Indication: PRODUCT USED FOR UNKNOWN INDICATION
     Dosage: 3 DF, QD
     Route: 048
     Dates: start: 20081223
  12. FLUCONAZOLE. [Suspect]
     Active Substance: FLUCONAZOLE
     Indication: RASH
     Dosage: 100 QD
     Route: 048
     Dates: start: 20090106, end: 20090118
  13. VANCOMYCIN [Suspect]
     Active Substance: VANCOMYCIN
     Indication: ABSCESS
     Dosage: 2 G, QD
     Route: 042
     Dates: start: 20081222, end: 20090112
  14. EBASTINE [Suspect]
     Active Substance: EBASTINE
     Indication: RASH
     Dosage: UNK
     Route: 048
     Dates: start: 20090107
  15. ECONAZOLE NITRATE. [Suspect]
     Active Substance: ECONAZOLE NITRATE
     Indication: RASH
     Dosage: 2 DF
     Route: 061
     Dates: start: 20090114

REACTIONS (1)
  - Hepatitis [Recovering/Resolving]

NARRATIVE: CASE EVENT DATE: 20090106
